FAERS Safety Report 10264534 (Version 1)
Quarter: 2014Q2

REPORT INFORMATION
  Report Type: Spontaneous
  Country: US (occurrence: US)
  Receive Date: 20140627
  Receipt Date: 20140627
  Transmission Date: 20141212
  Serious: No
  Sender: FDA-Public Use
  Company Number: US-BRACCO-010495

PATIENT
  Age: 67 Year
  Sex: Male

DRUGS (7)
  1. MULTIHANCE [Suspect]
     Indication: ARTERIOGRAM CAROTID
     Route: 042
     Dates: start: 20140117, end: 20140117
  2. LAMISIL [Concomitant]
  3. DESYREL [Concomitant]
  4. NORVASC [Concomitant]
  5. ASPIRIN [Concomitant]
  6. OMEPRAZOLE [Concomitant]
  7. LOPRESSOR [Concomitant]

REACTIONS (2)
  - Vision blurred [Not Recovered/Not Resolved]
  - Lid sulcus deepened [Not Recovered/Not Resolved]
